FAERS Safety Report 25043045 (Version 2)
Quarter: 2025Q1

REPORT INFORMATION
  Report Type: Spontaneous
  Country: FR (occurrence: FR)
  Receive Date: 20250305
  Receipt Date: 20250312
  Transmission Date: 20250409
  Serious: Yes (Death, Other)
  Sender: GILEAD
  Company Number: None

PATIENT
  Age: 67 Year
  Sex: Female
  Weight: 70 kg

DRUGS (1)
  1. TRODELVY [Suspect]
     Active Substance: SACITUZUMAB GOVITECAN-HZIY
     Indication: Triple negative breast cancer
     Dosage: 200 MG, Q1WK
     Route: 042
     Dates: start: 20250113, end: 20250120

REACTIONS (2)
  - Rectal perforation [Fatal]
  - Bone marrow failure [Fatal]

NARRATIVE: CASE EVENT DATE: 20250127
